FAERS Safety Report 8946866 (Version 4)
Quarter: 2013Q2

REPORT INFORMATION
  Report Type: Spontaneous
  Country: BR (occurrence: BR)
  Receive Date: 20121205
  Receipt Date: 20130408
  Transmission Date: 20140414
  Serious: Yes (Other)
  Sender: FDA-Public Use
  Company Number: BR-GLAXOSMITHKLINE-A1004090A

PATIENT
  Age: 67 Year
  Sex: Male
  Weight: 66 kg

DRUGS (2)
  1. AVODART [Suspect]
     Indication: PROSTATOMEGALY
     Dosage: .5MG IN THE MORNING
     Route: 048
     Dates: start: 20120901, end: 20120904
  2. CLONIXIN [Suspect]
     Dosage: 1TAB TWICE PER DAY
     Dates: start: 20120901, end: 20120904

REACTIONS (4)
  - Urinary retention [Recovered/Resolved]
  - Pain [Recovered/Resolved]
  - Product quality issue [Unknown]
  - Adverse drug reaction [Recovered/Resolved]
